FAERS Safety Report 13718388 (Version 1)
Quarter: 2017Q3

REPORT INFORMATION
  Report Type: Spontaneous
  Country: FR (occurrence: FR)
  Receive Date: 20170705
  Receipt Date: 20170705
  Transmission Date: 20171127
  Serious: Yes (Death, Hospitalization, Other)
  Sender: FDA-Public Use
  Company Number: FR-PFIZER INC-2017284525

PATIENT
  Age: 65 Year
  Sex: Male

DRUGS (12)
  1. SPIRONOLACTONE. [Interacting]
     Active Substance: SPIRONOLACTONE
     Indication: HYPERTENSION
     Dosage: 25 MG, 1X/DAY IN THE MORNING
     Route: 048
     Dates: end: 20170516
  2. CANDESARTAN CILEXETIL. [Interacting]
     Active Substance: CANDESARTAN CILEXETIL
     Indication: HYPERTENSION
     Dosage: 16 MG, 1X/DAY (IN THE MORNING)
     Route: 048
     Dates: end: 20170516
  3. NOVOMIX 30 [Concomitant]
     Active Substance: INSULIN ASPART
     Dosage: 30 UNK, 2X/DAY (MORNING AND EVENING)
  4. TAHOR [Concomitant]
     Active Substance: ATORVASTATIN CALCIUM
     Dosage: 20 MG, 1X/DAY IN THE EVENING
  5. OXALIPLATIN. [Suspect]
     Active Substance: OXALIPLATIN
     Indication: COLON CANCER
     Dosage: UNK, CYCLIC
     Route: 042
     Dates: start: 20170504, end: 20170504
  6. PANTOPRAZOLE [Concomitant]
     Active Substance: PANTOPRAZOLE
     Dosage: 20 MG, DAILY
  7. METFORMIN [Concomitant]
     Active Substance: METFORMIN HYDROCHLORIDE
     Dosage: 1 G, 3X/DAY IN THE MORNING, NOON AND EVENING
  8. BISOPROLOL FUMARATE. [Interacting]
     Active Substance: BISOPROLOL FUMARATE
     Indication: HYPERTENSION
     Dosage: 7.5 MG, 1X/DAY IN THE MORNING
     Route: 048
     Dates: end: 20170516
  9. ALLOPURINOL. [Concomitant]
     Active Substance: ALLOPURINOL
     Dosage: 100 MG, DAILY
  10. AMLOR [Interacting]
     Active Substance: AMLODIPINE BESYLATE
     Indication: HYPERTENSION
     Dosage: 5 MG, 1X/DAY
     Route: 048
     Dates: end: 20170516
  11. TOMUDEX [Interacting]
     Active Substance: RALTITREXED
     Indication: COLON CANCER
     Dosage: UNK, CYCLIC
     Route: 042
     Dates: start: 20170504, end: 20170504
  12. ELIQUIS [Concomitant]
     Active Substance: APIXABAN
     Dosage: 5 MG, 2X/DAY (MORNING AND EVENING)

REACTIONS (5)
  - Hypovolaemic shock [Fatal]
  - Acute kidney injury [Fatal]
  - Colitis [Fatal]
  - Diarrhoea [Fatal]
  - Drug interaction [Fatal]

NARRATIVE: CASE EVENT DATE: 20170504
